FAERS Safety Report 26115265 (Version 1)
Quarter: 2025Q4

REPORT INFORMATION
  Report Type: Spontaneous
  Country: EU (occurrence: EU)
  Receive Date: 20251203
  Receipt Date: 20251203
  Transmission Date: 20260118
  Serious: Yes (Hospitalization)
  Sender: CHEPLAPHARM
  Company Number: None

PATIENT
  Age: 70 Year
  Sex: Male
  Weight: 75 kg

DRUGS (4)
  1. CAPECITABINE [Suspect]
     Active Substance: CAPECITABINE
     Dosage: DAILY DOSE: 1300 MILLIGRAM
     Route: 048
     Dates: start: 20250723, end: 20250903
  2. CAPECITABINE [Suspect]
     Active Substance: CAPECITABINE
     Dosage: C/ 3 WEEKS, XELOX
  3. OXALIPLATIN [Suspect]
     Active Substance: OXALIPLATIN
     Indication: Adenocarcinoma of colon
     Route: 042
     Dates: start: 20250723, end: 20250903
  4. OXALIPLATIN [Suspect]
     Active Substance: OXALIPLATIN
     Indication: Adenocarcinoma of colon
     Dosage: C/ 3 WEEKS, XELOX
     Route: 042

REACTIONS (7)
  - Cellulitis [Recovered/Resolved]
  - Osteomyelitis [Recovering/Resolving]
  - Subcutaneous abscess [Unknown]
  - Onychomycosis [Unknown]
  - Skin ulcer [Unknown]
  - Tenosynovitis [Unknown]
  - Injury [Unknown]

NARRATIVE: CASE EVENT DATE: 20250901
